FAERS Safety Report 4935093-6 (Version None)
Quarter: 2006Q1

REPORT INFORMATION
  Report Type: 
  Country: None (occurrence: None)
  Receive Date: 20060303
  Receipt Date: 20060303
  Transmission Date: 20060701
  Serious: Yes (Hospitalization)
  Sender: FDA-Public Use
  Company Number: None

PATIENT
  Sex: Female
  Weight: 60.782 kg

DRUGS (2)
  1. LISINOPRIL [Suspect]
     Indication: HYPERTENSION
     Dosage: 10 MG  DAILY PO
     Route: 048
     Dates: start: 20060202, end: 20060223
  2. PLAVIX [Suspect]
     Dosage: 75MG DAILY PO
     Route: 048
     Dates: start: 20060203, end: 20060227

REACTIONS (9)
  - DYSPHAGIA [None]
  - FEELING ABNORMAL [None]
  - LIP DISORDER [None]
  - LOCAL SWELLING [None]
  - OEDEMA MOUTH [None]
  - OEDEMA PERIPHERAL [None]
  - PRURITUS [None]
  - STRIDOR [None]
  - URTICARIA [None]
